FAERS Safety Report 17555407 (Version 7)
Quarter: 2020Q3

REPORT INFORMATION
  Report Type: Report from Study
  Country: US (occurrence: US)
  Receive Date: 20200318
  Receipt Date: 20200903
  Transmission Date: 20201102
  Serious: Yes (Hospitalization, Other)
  Sender: FDA-Public Use
  Company Number: NVSC2020US075276

PATIENT
  Sex: Male

DRUGS (1)
  1. COSENTYX [Suspect]
     Active Substance: SECUKINUMAB
     Indication: ANKYLOSING SPONDYLITIS
     Dosage: UNK UNK, Q4W
     Route: 058

REACTIONS (4)
  - Musculoskeletal discomfort [Recovering/Resolving]
  - Illness [Recovering/Resolving]
  - Cervicogenic headache [Recovering/Resolving]
  - Gait disturbance [Recovering/Resolving]
